FAERS Safety Report 5669722-9 (Version None)
Quarter: 2008Q1

REPORT INFORMATION
  Report Type: 
  Country: None (occurrence: None)
  Receive Date: 20080313
  Receipt Date: 20080313
  Transmission Date: 20080703
  Serious: Yes (Hospitalization)
  Sender: FDA-Public Use
  Company Number: None

PATIENT
  Age: 51 Year
  Sex: Female
  Weight: 66.2252 kg

DRUGS (1)
  1. VYTORIN [Suspect]
     Indication: BLOOD CHOLESTEROL INCREASED
     Dosage: 1 DAILY
     Dates: start: 20071203, end: 20080107

REACTIONS (9)
  - BLOOD PRESSURE SYSTOLIC INCREASED [None]
  - CHEST DISCOMFORT [None]
  - CHROMATURIA [None]
  - DRUG HYPERSENSITIVITY [None]
  - FLUID RETENTION [None]
  - LOSS OF EMPLOYMENT [None]
  - MALAISE [None]
  - MYALGIA [None]
  - WEIGHT DECREASED [None]
